FAERS Safety Report 17662874 (Version 1)
Quarter: 2020Q2

REPORT INFORMATION
  Report Type: Spontaneous
  Country: CA (occurrence: CA)
  Receive Date: 20200413
  Receipt Date: 20200413
  Transmission Date: 20200713
  Serious: Yes (Hospitalization)
  Sender: FDA-Public Use
  Company Number: CA-TEVA-2020-CA-1221403

PATIENT
  Sex: Male

DRUGS (3)
  1. PREDNISONE. [Suspect]
     Active Substance: PREDNISONE
     Dosage: 40MG ONCE PER DAY FOR 7 DAYS, THEN TAPER BY 5MG EVERY 7 DAYS UNTIL 5MG ONCE PER DAY, THEN STOP CURRE
     Route: 048
     Dates: start: 201912
  2. MEZAVANT [Concomitant]
     Active Substance: MESALAMINE
     Dosage: 4800 MILLIGRAM DAILY; 2.4 TWICE DAILY
     Route: 048
     Dates: start: 201912
  3. INFLIXIMAB [Concomitant]
     Active Substance: INFLIXIMAB
     Dosage: NEXT DOSE DUE IN 2WEEKS)
     Route: 042
     Dates: start: 20200103

REACTIONS (4)
  - Drug ineffective [Unknown]
  - Colitis [Unknown]
  - Gastrointestinal inflammation [Unknown]
  - Drug resistance [Unknown]
